FAERS Safety Report 7997439-4 (Version None)
Quarter: 2011Q4

REPORT INFORMATION
  Report Type: 
  Country: None (occurrence: None)
  Receive Date: 20111221
  Receipt Date: 20111219
  Transmission Date: 20120403
  Serious: Yes (Hospitalization)
  Sender: FDA-Public Use
  Company Number: US-BAYER-2011-122168

PATIENT
  Sex: Female

DRUGS (2)
  1. THYROID TAB [Concomitant]
  2. AVELOX [Suspect]
     Indication: PNEUMONIA
     Dosage: 400 MG, QD
     Route: 048
     Dates: start: 20110101, end: 20110101

REACTIONS (2)
  - URTICARIA [None]
  - DYSPHONIA [None]
